FAERS Safety Report 4480583-6 (Version None)
Quarter: 2004Q4

REPORT INFORMATION
  Report Type: 
  Country: None (occurrence: None)
  Receive Date: 20041019
  Receipt Date: 20041007
  Transmission Date: 20050328
  Serious: Yes (Hospitalization)
  Sender: FDA-Public Use
  Company Number: 2004UW21106

PATIENT
  Age: 30 Year
  Sex: Female
  Weight: 67 kg

DRUGS (1)
  1. ZOLADEX [Suspect]
     Indication: ENDOMETRIOSIS
     Dosage: 3.6 MG SQ
     Route: 058
     Dates: start: 20040728, end: 20040825

REACTIONS (4)
  - AMNESIA [None]
  - ANAPHYLACTIC SHOCK [None]
  - BRAIN HYPOXIA [None]
  - COORDINATION ABNORMAL [None]
